FAERS Safety Report 24583776 (Version 1)
Quarter: 2024Q4

REPORT INFORMATION
  Report Type: Spontaneous
  Country: CA (occurrence: CA)
  Receive Date: 20241106
  Receipt Date: 20241106
  Transmission Date: 20250114
  Serious: Yes (Other)
  Sender: SANOFI AVENTIS
  Company Number: CA-SA-SAC20240129000652

PATIENT
  Age: 56 Year
  Sex: Female

DRUGS (17)
  1. AVAPRO [Suspect]
     Active Substance: IRBESARTAN
     Indication: Hypertension
     Dosage: 300 MG, QD
     Route: 065
  2. NALOXONE HYDROCHLORIDE\OXYCODONE HYDROCHLORIDE [Concomitant]
     Active Substance: NALOXONE HYDROCHLORIDE\OXYCODONE HYDROCHLORIDE
     Dosage: UNK
  3. OXYCODONE [Concomitant]
     Active Substance: OXYCODONE
     Dosage: UNK
  4. CEFIXIME [Concomitant]
     Active Substance: CEFIXIME
     Dosage: UNK
  5. BISOPROLOL [Concomitant]
     Active Substance: BISOPROLOL\BISOPROLOL FUMARATE
     Dosage: UNK
  6. RUPATADINE FUMARATE [Concomitant]
     Active Substance: RUPATADINE FUMARATE
     Dosage: UNK
  7. ATIVAN [Concomitant]
     Active Substance: LORAZEPAM
     Dosage: UNK
  8. DAYVIGO [Concomitant]
     Active Substance: LEMBOREXANT
     Dosage: UNK
  9. PROLIA [Concomitant]
     Active Substance: DENOSUMAB
     Dosage: UNK
  10. IRON [Concomitant]
     Active Substance: IRON
     Dosage: UNK
  11. LACTOBACILLUS ACIDOPHILUS [Concomitant]
     Active Substance: LACTOBACILLUS ACIDOPHILUS
     Dosage: UNK
  12. CANNABIS SATIVA SUBSP. INDICA TOP [Concomitant]
     Active Substance: CANNABIS SATIVA SUBSP. INDICA TOP
     Dosage: UNK
  13. BUDESONIDE [Concomitant]
     Active Substance: BUDESONIDE
     Dosage: UNK
  14. PREVACID [Concomitant]
     Active Substance: LANSOPRAZOLE
     Dosage: UNK
  15. DOMPERIDONE [Concomitant]
     Active Substance: DOMPERIDONE
     Dosage: UNK
  16. PRUCALOPRIDE [Concomitant]
     Active Substance: PRUCALOPRIDE
     Dosage: UNK
  17. BUDESONIDE [Concomitant]
     Active Substance: BUDESONIDE
     Indication: Eosinophilic oesophagitis
     Dosage: UNK

REACTIONS (8)
  - Pneumonia aspiration [Unknown]
  - Erosive oesophagitis [Unknown]
  - Migraine [Recovering/Resolving]
  - Anaemia [Unknown]
  - Injury [Recovering/Resolving]
  - Fall [Recovering/Resolving]
  - Headache [Unknown]
  - Myalgia [Unknown]

NARRATIVE: CASE EVENT DATE: 20240101
